FAERS Safety Report 7015312-5 (Version None)
Quarter: 2010Q3

REPORT INFORMATION
  Report Type: 
  Country: None (occurrence: None)
  Receive Date: 20100927
  Receipt Date: 20100915
  Transmission Date: 20110219
  Serious: Yes (Other)
  Sender: FDA-Public Use
  Company Number: FR-ELI_LILLY_AND_COMPANY-FR201009003641

PATIENT
  Age: 68 Year
  Sex: Female

DRUGS (9)
  1. GEMZAR [Suspect]
     Indication: LYMPHOMA
     Dosage: UNK, UNKNOWN
     Route: 042
     Dates: start: 20100317
  2. GEMZAR [Suspect]
     Dosage: UNK, UNKNOWN
     Route: 042
     Dates: start: 20100412
  3. GEMZAR [Suspect]
     Dosage: 720 MG, UNKNOWN
     Route: 042
     Dates: start: 20100510
  4. NAVELBINE [Concomitant]
     Indication: LYMPHOMA
     Dosage: UNK, UNKNOWN
     Route: 042
     Dates: start: 20100317
  5. NAVELBINE [Concomitant]
     Dosage: UNK, UNKNOWN
     Route: 042
     Dates: start: 20100412
  6. NAVELBINE [Concomitant]
     Dosage: 14 MG, UNKNOWN
     Route: 042
     Dates: start: 20100510
  7. CAELYX [Concomitant]
     Indication: LYMPHOMA
     Dosage: UNK, UNKNOWN
     Route: 042
     Dates: start: 20100317
  8. CAELYX [Concomitant]
     Dosage: UNK, UNKNOWN
     Route: 042
     Dates: start: 20100412
  9. CAELYX [Concomitant]
     Dosage: 14 MG, UNKNOWN
     Route: 042
     Dates: start: 20100510

REACTIONS (4)
  - MYALGIA [None]
  - PANCYTOPENIA [None]
  - RASH MACULO-PAPULAR [None]
  - VISUAL IMPAIRMENT [None]
